FAERS Safety Report 9367805 (Version 1)
Quarter: 2013Q2

REPORT INFORMATION
  Report Type: Spontaneous
  Country: US (occurrence: US)
  Receive Date: 20130625
  Receipt Date: 20130625
  Transmission Date: 20140414
  Serious: Yes (Other)
  Sender: FDA-Public Use
  Company Number: US-ASTELLAS-2012US007928

PATIENT
  Age: 77 Year
  Sex: Female

DRUGS (3)
  1. VESICARE [Suspect]
     Indication: HYPERTONIC BLADDER
     Dosage: 5 MG, UID/QD
     Route: 048
     Dates: start: 201206, end: 2012
  2. VESICARE [Suspect]
     Dosage: 5 MG, UID/QD
     Route: 048
     Dates: start: 201208, end: 201209
  3. VESICARE [Suspect]
     Dosage: 5 MG, QOD
     Route: 048
     Dates: start: 201209

REACTIONS (5)
  - Inappropriate schedule of drug administration [Unknown]
  - Swollen tongue [Recovered/Resolved]
  - Aphthous stomatitis [Unknown]
  - Somnolence [Unknown]
  - Dry mouth [Unknown]
